FAERS Safety Report 8536167-3 (Version None)
Quarter: 2012Q3

REPORT INFORMATION
  Report Type: 
  Country: None (occurrence: None)
  Receive Date: 20120725
  Receipt Date: 20120711
  Transmission Date: 20120928
  Serious: Yes (Other)
  Sender: FDA-Public Use
  Company Number: US-ELI_LILLY_AND_COMPANY-US201207003921

PATIENT
  Age: 57 Year
  Sex: Female

DRUGS (10)
  1. CYMBALTA [Suspect]
     Dosage: 90 MG, QD
     Route: 065
     Dates: start: 20120112, end: 20120201
  2. GABAPENTIN [Concomitant]
  3. LYRICA [Concomitant]
  4. TRAMADOL HYDROCHLORIDE [Concomitant]
  5. SINGULAIR [Concomitant]
  6. CYMBALTA [Suspect]
     Indication: FIBROMYALGIA
     Dosage: 60 MG, QD
     Route: 065
     Dates: start: 20111229, end: 20120112
  7. KLONOPIN [Concomitant]
  8. ASTELIN [Concomitant]
  9. LUNESTA [Concomitant]
     Dosage: UNK, UNKNOWN
  10. OPANA [Concomitant]
     Dosage: UNK, PRN

REACTIONS (1)
  - STEVENS-JOHNSON SYNDROME [None]
